FAERS Safety Report 6914673-2 (Version None)
Quarter: 2010Q3

REPORT INFORMATION
  Report Type: 
  Country: None (occurrence: None)
  Receive Date: 20100805
  Receipt Date: 20100805
  Transmission Date: 20110219
  Serious: Yes (Life-Threatening, Hospitalization)
  Sender: FDA-Public Use
  Company Number: None

PATIENT
  Age: 75 Year
  Sex: Male
  Weight: 120 kg

DRUGS (2)
  1. CIPROFLOXACIN [Suspect]
     Indication: SEPSIS
     Dosage: 400 MG BID IV
     Route: 042
     Dates: start: 20100625, end: 20100628
  2. PIPERACILLIN AND TAZOBACTAM [Suspect]
     Indication: SEPSIS
     Dosage: 3.375 GM TID IV
     Route: 042
     Dates: start: 20100621, end: 20100628

REACTIONS (3)
  - DRUG RESISTANCE [None]
  - IDIOPATHIC THROMBOCYTOPENIC PURPURA [None]
  - THROMBOCYTOPENIA [None]
